FAERS Safety Report 9240327 (Version 1)
Quarter: 2013Q2

REPORT INFORMATION
  Report Type: Spontaneous
  Country: US (occurrence: US)
  Receive Date: 20130418
  Receipt Date: 20130418
  Transmission Date: 20140414
  Serious: No
  Sender: FDA-Public Use
  Company Number: US-SANOFI-AVENTIS-2012SA051724

PATIENT
  Age: 65 Year
  Sex: Male

DRUGS (1)
  1. ENOXAPARIN SODIUM [Suspect]
     Route: 065
     Dates: start: 201204

REACTIONS (3)
  - Weight decreased [Unknown]
  - Injection site induration [Unknown]
  - Injection site nodule [Unknown]
